FAERS Safety Report 6501279-2 (Version None)
Quarter: 2009Q4

REPORT INFORMATION
  Report Type: 
  Country: None (occurrence: None)
  Receive Date: 20091216
  Receipt Date: 20091204
  Transmission Date: 20100525
  Serious: Yes (Hospitalization)
  Sender: FDA-Public Use
  Company Number: CN-BRISTOL-MYERS SQUIBB COMPANY-14879928

PATIENT
  Sex: Female

DRUGS (1)
  1. MAXIPIME [Suspect]
     Route: 042

REACTIONS (1)
  - MENTAL DISORDER [None]
